FAERS Safety Report 26049229 (Version 1)
Quarter: 2025Q4

REPORT INFORMATION
  Report Type: Spontaneous
  Country: CN (occurrence: CN)
  Receive Date: 20251115
  Receipt Date: 20251115
  Transmission Date: 20260118
  Serious: Yes (Life-Threatening, Hospitalization)
  Sender: ACCORD
  Company Number: CN-Accord-512863

PATIENT
  Age: 75 Year
  Sex: Male

DRUGS (1)
  1. CLOZAPINE [Suspect]
     Active Substance: CLOZAPINE
     Indication: Schizophrenia
     Dosage: LONG-TERM
     Route: 048

REACTIONS (5)
  - Sepsis [Recovered/Resolved]
  - Corynebacterium infection [Recovered/Resolved]
  - Peritonitis [Recovered/Resolved]
  - Candida infection [Recovered/Resolved]
  - Ascites [Recovered/Resolved]
